FAERS Safety Report 25318118 (Version 1)
Quarter: 2025Q2

REPORT INFORMATION
  Report Type: Spontaneous
  Country: US (occurrence: US)
  Receive Date: 20250515
  Receipt Date: 20250515
  Transmission Date: 20250717
  Serious: Yes (Other)
  Sender: DAITO PHARMACEUTICALS
  Company Number: US-Daito Pharmaceutical Co., Ltd.-2176733

PATIENT
  Age: 79 Year
  Sex: Female

DRUGS (2)
  1. METHOTREXATE SODIUM [Suspect]
     Active Substance: METHOTREXATE SODIUM
     Indication: Rheumatoid arthritis
  2. ADALIMUMAB [Concomitant]
     Active Substance: ADALIMUMAB

REACTIONS (1)
  - Neutropenic colitis [Recovering/Resolving]
